FAERS Safety Report 8568604-2 (Version None)
Quarter: 2012Q3

REPORT INFORMATION
  Report Type: 
  Country: None (occurrence: None)
  Receive Date: 20120803
  Receipt Date: 20120126
  Transmission Date: 20120928
  Serious: No
  Sender: FDA-Public Use
  Company Number: US-ABBOTT-12P-163-0899738-00

PATIENT
  Sex: Female

DRUGS (9)
  1. NIASPAN [Suspect]
     Indication: BLOOD TRIGLYCERIDES INCREASED
     Dosage: SPORADICALLY
     Dates: start: 20111101
  2. THYROID TAB [Concomitant]
     Indication: HYPOTHYROIDISM
  3. SOMA [Concomitant]
     Indication: PAIN
  4. ATIVAN [Concomitant]
     Indication: ANXIETY
  5. PERCOCET [Concomitant]
     Indication: PAIN
  6. OXYCONTIN [Concomitant]
     Indication: PAIN
  7. LEXAPRO [Concomitant]
     Indication: DEPRESSION
  8. HYDROCHLOROTHIAZDE TAB [Concomitant]
     Indication: FLUID RETENTION
  9. AMBIEN [Concomitant]
     Indication: SLEEP DISORDER THERAPY

REACTIONS (2)
  - FLUSHING [None]
  - INAPPROPRIATE SCHEDULE OF DRUG ADMINISTRATION [None]
